FAERS Safety Report 22152252 (Version 1)
Quarter: 2023Q1

REPORT INFORMATION
  Report Type: Spontaneous
  Country: GB (occurrence: GB)
  Receive Date: 20230329
  Receipt Date: 20230329
  Transmission Date: 20230417
  Serious: Yes (Hospitalization)
  Sender: FDA-Public Use
  Company Number: GB-MYLANLABS-2023M1009482

PATIENT
  Sex: Female

DRUGS (2)
  1. CLOZARIL [Suspect]
     Active Substance: CLOZAPINE
     Indication: Schizophrenia
     Dosage: 300 MILLIGRAM, QD (300 MG IN NIGHT )
     Route: 048
     Dates: start: 20040401
  2. CLOZARIL [Suspect]
     Active Substance: CLOZAPINE
     Dosage: 50 MILLIGRAM, QD (50 MG IN MORNING.)
     Route: 048
     Dates: start: 20040401

REACTIONS (3)
  - Constipation [Unknown]
  - Hospitalisation [Unknown]
  - Adverse drug reaction [Unknown]
